FAERS Safety Report 6636825-1 (Version None)
Quarter: 2010Q1

REPORT INFORMATION
  Report Type: 
  Country: None (occurrence: None)
  Receive Date: 20100316
  Receipt Date: 20100304
  Transmission Date: 20100710
  Serious: Yes (Other)
  Sender: FDA-Public Use
  Company Number: GB-GENZYME-CLOF-1000889

PATIENT
  Sex: Male

DRUGS (9)
  1. EVOLTRA [Suspect]
     Indication: ACUTE LEUKAEMIA
     Dosage: UNK UNK, QDX5
     Route: 042
     Dates: start: 20091218, end: 20091222
  2. DAUNORUBICIN HCL [Suspect]
     Indication: ACUTE LEUKAEMIA
     Dosage: UNK UNK, QDX5
     Route: 065
     Dates: start: 20091218, end: 20091222
  3. ARA-C [Suspect]
     Indication: ACUTE LEUKAEMIA
     Dosage: UNK UNK, QDX5
     Route: 065
     Dates: start: 20091218, end: 20091222
  4. MYLOTARG [Suspect]
     Indication: ACUTE LEUKAEMIA
     Dosage: 6 MG/M2, QDX5
     Route: 065
     Dates: start: 20091218, end: 20091222
  5. CHLORHEXIDINE GLUCONATE [Concomitant]
     Indication: DRUG USE FOR UNKNOWN INDICATION
     Dosage: 10 ML, UNK
     Dates: start: 20091218
  6. NYSTATIN [Concomitant]
     Indication: DRUG USE FOR UNKNOWN INDICATION
     Dosage: 1 ML, UNK
     Dates: start: 20091218
  7. ACYCLOVIR [Concomitant]
     Indication: DRUG USE FOR UNKNOWN INDICATION
     Dosage: 400 MG, UNK
     Dates: start: 20091218
  8. PARACETAMOL [Concomitant]
     Indication: DRUG USE FOR UNKNOWN INDICATION
     Dosage: 1 G, UNK
     Dates: start: 20091201, end: 20100101
  9. CODEINE SULFATE [Concomitant]
     Indication: DRUG USE FOR UNKNOWN INDICATION
     Dosage: 30 MG, UNK
     Dates: start: 20091201, end: 20100101

REACTIONS (1)
  - THROMBOCYTOPENIA [None]
